FAERS Safety Report 12636039 (Version 4)
Quarter: 2016Q4

REPORT INFORMATION
  Report Type: Spontaneous
  Country: US (occurrence: US)
  Receive Date: 20160809
  Receipt Date: 20161215
  Transmission Date: 20170207
  Serious: No
  Sender: FDA-Public Use
  Company Number: US-PFIZER INC-2016374691

PATIENT
  Age: 56 Year
  Sex: Female
  Weight: 73.15 kg

DRUGS (4)
  1. IBRANCE [Suspect]
     Active Substance: PALBOCICLIB
     Indication: BREAST CANCER METASTATIC
     Dosage: 125 MG, CYCLIC (DAYS 1-21 Q 28 DAYS)
     Route: 048
     Dates: start: 20160719
  2. FASLODEX [Suspect]
     Active Substance: FULVESTRANT
     Dosage: UNK
  3. IBRANCE [Suspect]
     Active Substance: PALBOCICLIB
     Dosage: 125 MG, CYCLIC (DAYS 1-21 Q 28 DAYS)
     Route: 048
     Dates: start: 20160719
  4. IBRANCE [Suspect]
     Active Substance: PALBOCICLIB
     Dosage: 125 MG, CYCLIC (DAYS 1-21 Q 28 DAYS)
     Route: 048
     Dates: start: 20160719

REACTIONS (14)
  - Fatigue [Unknown]
  - Musculoskeletal chest pain [Unknown]
  - Rash papular [Unknown]
  - Dyspnoea [Unknown]
  - Pyrexia [Unknown]
  - Back pain [Unknown]
  - Arthralgia [Unknown]
  - Muscle spasms [Unknown]
  - Nasopharyngitis [Unknown]
  - Productive cough [Unknown]
  - Pain [Unknown]
  - Rotator cuff syndrome [Unknown]
  - Rash erythematous [Unknown]
  - Rash pruritic [Unknown]
